FAERS Safety Report 5972869-0 (Version None)
Quarter: 2008Q4

REPORT INFORMATION
  Report Type: 
  Country: None (occurrence: None)
  Receive Date: 20081126
  Receipt Date: 20081126
  Transmission Date: 20090506
  Serious: No
  Sender: FDA-Public Use
  Company Number: None

PATIENT
  Sex: Female
  Weight: 61.2356 kg

DRUGS (1)
  1. LAMOTRIGINE [Suspect]
     Indication: CONVULSION
     Dosage: 100 MG 2 TIMES PER DAY PO
     Route: 048
     Dates: start: 20081001, end: 20081007

REACTIONS (3)
  - FATIGUE [None]
  - MENTAL DISORDER [None]
  - PRODUCT QUALITY ISSUE [None]
